FAERS Safety Report 10161678 (Version 1)
Quarter: 2014Q2

REPORT INFORMATION
  Report Type: Spontaneous
  Country: US (occurrence: None)
  Receive Date: 20140508
  Receipt Date: 20140508
  Transmission Date: 20141212
  Serious: Yes (Hospitalization)
  Sender: FDA-Public Use
  Company Number: None

PATIENT
  Age: 79 Year
  Sex: Male
  Weight: 90.72 kg

DRUGS (1)
  1. MULTAQ [Suspect]

REACTIONS (6)
  - Gastrointestinal disorder [None]
  - Pain [None]
  - Diarrhoea [None]
  - Decreased appetite [None]
  - Fatigue [None]
  - Depression [None]
